FAERS Safety Report 7386693-8 (Version None)
Quarter: 2011Q1

REPORT INFORMATION
  Report Type: 
  Country: None (occurrence: None)
  Receive Date: 20110331
  Receipt Date: 20110322
  Transmission Date: 20110831
  Serious: Yes (Other)
  Sender: FDA-Public Use
  Company Number: KR-BAYER-2011-021522

PATIENT
  Sex: Female

DRUGS (1)
  1. ULTRAVIST 150 [Suspect]
     Indication: COMPUTERISED TOMOGRAM
     Dosage: UNK
     Route: 042
     Dates: start: 20110305, end: 20110305

REACTIONS (4)
  - INJECTION SITE SWELLING [None]
  - INJECTION SITE EXTRAVASATION [None]
  - CHEMICAL BURN OF SKIN [None]
  - BLISTER [None]
